FAERS Safety Report 4917576-8 (Version None)
Quarter: 2006Q1

REPORT INFORMATION
  Report Type: 
  Country: None (occurrence: None)
  Receive Date: 20060221
  Receipt Date: 20060210
  Transmission Date: 20060701
  Serious: Yes (Hospitalization)
  Sender: FDA-Public Use
  Company Number: JP-JNJFOC-20051205393

PATIENT
  Age: 46 Year
  Sex: Male

DRUGS (16)
  1. TAVANIC [Suspect]
     Route: 048
     Dates: start: 20050926, end: 20051113
  2. LOVENOX [Suspect]
  3. LOVENOX [Suspect]
     Indication: DRUG USE FOR UNKNOWN INDICATION
  4. PYOSTACINE [Suspect]
     Route: 048
     Dates: start: 20051017, end: 20051122
  5. FRAXODI [Suspect]
     Indication: DRUG USE FOR UNKNOWN INDICATION
     Route: 058
     Dates: start: 20051020, end: 20051118
  6. LEXOMIL [Concomitant]
     Route: 048
  7. NEURONTIN [Concomitant]
  8. OMEPRAZOLE [Concomitant]
  9. CLONAZEPAM [Concomitant]
     Route: 048
  10. DURAGESIC-100 [Concomitant]
     Route: 062
  11. MEPRONIZINE [Concomitant]
     Route: 048
  12. MEPRONIZINE [Concomitant]
     Route: 048
  13. ORBENINE [Concomitant]
     Dates: start: 20050914, end: 20051017
  14. FUCIDINE CAP [Concomitant]
     Dates: start: 20051114
  15. OFLOCET [Concomitant]
     Route: 065
     Dates: start: 20051121
  16. RIFADIN [Concomitant]
     Dates: start: 20050914, end: 20050926

REACTIONS (2)
  - EOSINOPHILIA [None]
  - PRURITUS [None]
